FAERS Safety Report 6640207-6 (Version None)
Quarter: 2010Q1

REPORT INFORMATION
  Report Type: 
  Country: None (occurrence: None)
  Receive Date: 20100303
  Receipt Date: 20100212
  Transmission Date: 20100710
  Serious: No
  Sender: FDA-Public Use
  Company Number: 2010-00246

PATIENT
  Age: 62 Year
  Sex: Female
  Weight: 72.5755 kg

DRUGS (4)
  1. ZICAM COLD REMEDY RAPIDMELTS WITH VITAMIN C [Suspect]
     Dosage: QID - 5 DAYS
     Dates: start: 20100207
  2. FLEXERIL [Concomitant]
  3. FOSAMAX [Concomitant]
  4. NEXIUM [Concomitant]

REACTIONS (1)
  - AGEUSIA [None]
